FAERS Safety Report 21264525 (Version 1)
Quarter: 2022Q3

REPORT INFORMATION
  Report Type: Spontaneous
  Country: US (occurrence: None)
  Receive Date: 20220826
  Receipt Date: 20220826
  Transmission Date: 20221027
  Serious: Yes (Hospitalization)
  Sender: FDA-Public Use
  Company Number: None

PATIENT
  Age: 36 Year
  Sex: Male

DRUGS (2)
  1. RECOMBINATE [Suspect]
     Active Substance: ANTIHEMOPHILIC FACTOR, HUMAN RECOMBINANT
     Indication: Factor VIII deficiency
     Dosage: 4990 UNITS;?OTHER FREQUENCY : 3 DAYS?
     Route: 042
     Dates: start: 202208
  2. RECOMBINATE [Suspect]
     Active Substance: ANTIHEMOPHILIC FACTOR, HUMAN RECOMBINANT
     Indication: Factor VIII deficiency
     Dosage: OTHER QUANTITY : 4990 UNITS?OTHER FREQUENCY : 3 DAY?
     Route: 042
     Dates: start: 202208

REACTIONS (1)
  - No adverse event [None]

NARRATIVE: CASE EVENT DATE: 20220805
